FAERS Safety Report 16091472 (Version 1)
Quarter: 2019Q1

REPORT INFORMATION
  Report Type: Spontaneous
  Country: JP (occurrence: JP)
  Receive Date: 20190319
  Receipt Date: 20190319
  Transmission Date: 20190418
  Serious: Yes (Other)
  Sender: FDA-Public Use
  Company Number: JP-JNJFOC-20190322693

PATIENT
  Sex: Male

DRUGS (5)
  1. CHLORDIAZEPOXIDE. [Concomitant]
     Active Substance: CHLORDIAZEPOXIDE
     Indication: PRODUCT USED FOR UNKNOWN INDICATION
     Route: 065
  2. ARTANE [Suspect]
     Active Substance: TRIHEXYPHENIDYL HYDROCHLORIDE
     Indication: PRODUCT USED FOR UNKNOWN INDICATION
     Route: 048
     Dates: end: 20190304
  3. ABILIFY [Concomitant]
     Active Substance: ARIPIPRAZOLE
     Indication: PRODUCT USED FOR UNKNOWN INDICATION
     Route: 065
  4. RISPERIDONE. [Suspect]
     Active Substance: RISPERIDONE
     Indication: PRODUCT USED FOR UNKNOWN INDICATION
     Route: 048
  5. BETANAMIN [Suspect]
     Active Substance: PEMOLINE
     Indication: DEPRESSION
     Route: 048

REACTIONS (11)
  - Eye pruritus [Unknown]
  - Somnolence [Unknown]
  - Gynaecomastia [Unknown]
  - Visual impairment [Unknown]
  - Muscle spasms [Unknown]
  - Obesity [Unknown]
  - Contraindicated product administered [Unknown]
  - Off label use [Unknown]
  - Glaucoma [Unknown]
  - Visual acuity reduced [Unknown]
  - Ocular hypertension [Recovered/Resolved]
